FAERS Safety Report 4464966-6 (Version None)
Quarter: 2004Q4

REPORT INFORMATION
  Report Type: 
  Country: None (occurrence: None)
  Receive Date: 20041004
  Receipt Date: 20040423
  Transmission Date: 20050328
  Serious: No
  Sender: FDA-Public Use
  Company Number: 368179

PATIENT
  Age: 55 Year
  Sex: Male

DRUGS (7)
  1. COREG [Suspect]
     Indication: ILL-DEFINED DISORDER
     Dosage: 6.25MG TWICE PER DAY
     Route: 048
  2. AMARYL [Concomitant]
  3. DIOVAN [Concomitant]
  4. ACTOS [Concomitant]
  5. GLUCOPHAGE [Concomitant]
  6. PLAVIX [Concomitant]
  7. MANDELAMINE [Concomitant]

REACTIONS (1)
  - WEIGHT INCREASED [None]
